FAERS Safety Report 9360703 (Version 2)
Quarter: 2013Q2

REPORT INFORMATION
  Report Type: Report from Study
  Country: CA (occurrence: CA)
  Receive Date: 20130621
  Receipt Date: 20130627
  Transmission Date: 20140414
  Serious: Yes (Other)
  Sender: FDA-Public Use
  Company Number: CA-MILLENNIUM PHARMACEUTICALS, INC.-2013-04643

PATIENT
  Sex: 0

DRUGS (7)
  1. VELCADE [Suspect]
     Indication: AMYLOIDOSIS
     Dosage: 1.97 MG, 1/WEEK
     Route: 058
     Dates: start: 20120901
  2. VELCADE [Suspect]
     Indication: PLASMA CELL MYELOMA
  3. CYCLOPHOSPHAMIDE [Concomitant]
  4. DEXAMETHASONE [Concomitant]
  5. LASIX                              /00032601/ [Concomitant]
     Dosage: 40 MG ALTERNATED WITH 80 MG OAD, UNK
  6. METOLAZONE [Concomitant]
  7. SYMBICORT [Concomitant]

REACTIONS (3)
  - Cardiac amyloidosis [Not Recovered/Not Resolved]
  - Cardiac failure [Not Recovered/Not Resolved]
  - Off label use [Unknown]
